FAERS Safety Report 10222640 (Version 1)
Quarter: 2014Q2

REPORT INFORMATION
  Report Type: Spontaneous
  Country: US (occurrence: US)
  Receive Date: 20140606
  Receipt Date: 20140606
  Transmission Date: 20141212
  Serious: Yes (Life-Threatening, Hospitalization)
  Sender: FDA-Public Use
  Company Number: US-B.I. PHARMACEUTICALS,INC./RIDGEFIELD-2014-BI-25304BP

PATIENT
  Age: 9 Year
  Sex: Male

DRUGS (1)
  1. CATAPRES [Suspect]
     Indication: PRODUCT USED FOR UNKNOWN INDICATION
     Dosage: 0.45 MG
     Route: 048
     Dates: start: 199204, end: 199207

REACTIONS (4)
  - Diarrhoea [Recovered/Resolved]
  - Crohn^s disease [Not Recovered/Not Resolved]
  - Overdose [Recovered/Resolved]
  - Off label use [Recovered/Resolved]
